FAERS Safety Report 6727261-8 (Version None)
Quarter: 2010Q2

REPORT INFORMATION
  Report Type: 
  Country: None (occurrence: None)
  Receive Date: 20100517
  Receipt Date: 20100510
  Transmission Date: 20101027
  Serious: Yes (Hospitalization, Disabling)
  Sender: FDA-Public Use
  Company Number: HR-SANOFI-AVENTIS-200918409GDDC

PATIENT
  Age: 76 Year
  Sex: Male
  Weight: 92 kg

DRUGS (7)
  1. BLINDED THERAPY [Suspect]
     Dosage: DOSE UNIT: 6 MG/KG
     Route: 042
     Dates: start: 20090713, end: 20090713
  2. DOCETAXEL [Suspect]
     Dosage: DOSE UNIT: 75 MG/M**2
     Route: 042
     Dates: start: 20090713, end: 20090713
  3. PREDNISONE [Suspect]
     Dosage: DOSE UNIT: 5 MG
     Route: 048
     Dates: start: 20090713, end: 20090728
  4. GOSERELIN [Concomitant]
     Indication: HORMONE REPLACEMENT THERAPY
     Dosage: DOSE AS USED: UNK
     Dates: start: 20070202
  5. CORYOL [Concomitant]
     Dosage: DOSE AS USED: UNK
     Dates: start: 20050101
  6. ATENOLOL [Concomitant]
     Dosage: DOSE AS USED: UNK
     Dates: start: 20090715
  7. ESOMEPRAZOLE [Concomitant]
     Dosage: DOSE AS USED: UNK
     Dates: start: 20090803

REACTIONS (1)
  - ISCHAEMIC STROKE [None]
